FAERS Safety Report 12156205 (Version 3)
Quarter: 2018Q1

REPORT INFORMATION
  Report Type: Report from Study
  Country: UY (occurrence: UY)
  Receive Date: 20160307
  Receipt Date: 20180125
  Transmission Date: 20180508
  Serious: Yes (Other)
  Sender: FDA-Public Use
  Company Number: UY-ASTELLAS-2016US008195

PATIENT
  Sex: Female

DRUGS (1)
  1. ERLOTINIB [Suspect]
     Active Substance: ERLOTINIB
     Indication: LUNG NEOPLASM MALIGNANT
     Route: 048
     Dates: start: 20160218

REACTIONS (9)
  - Skin tightness [Not Recovered/Not Resolved]
  - Skin burning sensation [Recovered/Resolved]
  - Eye irritation [Not Recovered/Not Resolved]
  - Pigmentation disorder [Recovered/Resolved]
  - Diarrhoea [Recovered/Resolved]
  - Skin exfoliation [Not Recovered/Not Resolved]
  - Swelling [Unknown]
  - Dry skin [Recovered/Resolved]
  - Eyelid irritation [Not Recovered/Not Resolved]
